FAERS Safety Report 6882617-8 (Version None)
Quarter: 2010Q3

REPORT INFORMATION
  Report Type: 
  Country: None (occurrence: None)
  Receive Date: 20100729
  Receipt Date: 20100719
  Transmission Date: 20110219
  Serious: Yes (Other)
  Sender: FDA-Public Use
  Company Number: CA-JNJFOC-20100706818

PATIENT
  Sex: Female

DRUGS (7)
  1. REMICADE [Suspect]
     Indication: JUVENILE ARTHRITIS
     Dosage: 1ST INFUSION
     Route: 042
  2. REMICADE [Suspect]
     Dosage: 2ND INFUSION
     Route: 042
  3. REMICADE [Suspect]
     Dosage: 3RD INFUSION
     Route: 042
  4. METHOTREXATE [Concomitant]
     Indication: PRODUCT USED FOR UNKNOWN INDICATION
     Route: 058
  5. METFORMIN HCL [Concomitant]
     Indication: PRODUCT USED FOR UNKNOWN INDICATION
     Route: 065
  6. SOLU-CORTEF [Concomitant]
     Indication: PREMEDICATION
     Dosage: 200.0 (NO UNITS)
     Route: 042
  7. BENADRYL [Concomitant]
     Indication: PREMEDICATION
     Route: 048

REACTIONS (8)
  - ARTHRALGIA [None]
  - COUGH [None]
  - DIABETES MELLITUS [None]
  - HEADACHE [None]
  - NAUSEA [None]
  - PAIN IN EXTREMITY [None]
  - PYREXIA [None]
  - TREMOR [None]
